FAERS Safety Report 7353710-0 (Version None)
Quarter: 2011Q1

REPORT INFORMATION
  Report Type: 
  Country: None (occurrence: None)
  Receive Date: 20110315
  Receipt Date: 20110302
  Transmission Date: 20110831
  Serious: Yes (Death)
  Sender: FDA-Public Use
  Company Number: JP-SANOFI-AVENTIS-2010SA074796

PATIENT
  Age: 53 Year
  Sex: Male
  Weight: 55 kg

DRUGS (15)
  1. CALCIUM LEVOFOLINATE [Suspect]
     Route: 041
     Dates: start: 20101115, end: 20101115
  2. 5-FU [Suspect]
     Route: 040
     Dates: start: 20101115, end: 20101115
  3. AVASTIN [Suspect]
     Route: 041
     Dates: start: 20101115, end: 20101115
  4. LASIX [Concomitant]
     Route: 048
     Dates: start: 20101124
  5. AVASTIN [Suspect]
     Indication: LARGE INTESTINE CARCINOMA
     Route: 041
     Dates: start: 20100920, end: 20100920
  6. SENNOSIDE A+B [Concomitant]
     Route: 048
  7. LANIRAPID [Concomitant]
     Indication: TACHYCARDIA
     Route: 048
     Dates: start: 20101124
  8. CALCIUM LEVOFOLINATE [Suspect]
     Indication: LARGE INTESTINE CARCINOMA
     Route: 041
     Dates: start: 20100915, end: 20100915
  9. MAGNESIUM OXIDE [Concomitant]
     Route: 048
  10. ELPLAT [Suspect]
     Indication: LARGE INTESTINE CARCINOMA
     Route: 041
     Dates: start: 20100920, end: 20100920
  11. 5-FU [Suspect]
     Indication: LARGE INTESTINE CARCINOMA
     Route: 040
     Dates: start: 20100920, end: 20100920
  12. VERAPAMIL HCL [Concomitant]
     Indication: TACHYCARDIA
     Dates: start: 20101124
  13. ELPLAT [Suspect]
     Route: 041
     Dates: start: 20101115, end: 20101115
  14. 5-FU [Suspect]
     Route: 041
     Dates: start: 20100920, end: 20100921
  15. 5-FU [Suspect]
     Route: 041
     Dates: start: 20101115, end: 20101116

REACTIONS (1)
  - CARDIAC FAILURE CONGESTIVE [None]
